FAERS Safety Report 10616548 (Version 1)
Quarter: 2014Q4

REPORT INFORMATION
  Report Type: Other
  Country: US (occurrence: US)
  Receive Date: 20141201
  Receipt Date: 20141201
  Transmission Date: 20150529
  Serious: Yes (Other)
  Sender: FDA-Public Use
  Company Number: US-SHIRE-US201408328

PATIENT
  Age: 33 Year
  Sex: Male

DRUGS (2)
  1. CINRYZE [Suspect]
     Active Substance: HUMAN C1-ESTERASE INHIBITOR
     Indication: HEREDITARY ANGIOEDEMA
     Dosage: UNK (1500 UNITS), OTHER (EVERY 3 DAYS)
     Route: 042
     Dates: start: 20140627
  2. CINRYZE [Suspect]
     Active Substance: HUMAN C1-ESTERASE INHIBITOR
     Indication: PROPHYLAXIS

REACTIONS (3)
  - Prescribed overdose [Not Recovered/Not Resolved]
  - Pharyngeal oedema [Unknown]
  - Localised oedema [Unknown]

NARRATIVE: CASE EVENT DATE: 20140627
